FAERS Safety Report 5236996-8 (Version None)
Quarter: 2007Q1

REPORT INFORMATION
  Report Type: 
  Country: None (occurrence: None)
  Receive Date: 20061208
  Receipt Date: 20050408
  Transmission Date: 20070707
  Serious: Yes (Other)
  Sender: FDA-Public Use
  Company Number: 2005UW02576

PATIENT
  Age: 42 Year
  Sex: Female
  Weight: 87.996 kg

DRUGS (4)
  1. CRESTOR [Suspect]
     Indication: HYPERTRIGLYCERIDAEMIA
     Dosage: 10 MG QD PO
     Route: 048
     Dates: start: 20041101
  2. CARDIZEM [Concomitant]
  3. ROBAXIN [Concomitant]
  4. PAXIL [Concomitant]

REACTIONS (2)
  - BLOOD TRIGLYCERIDES INCREASED [None]
  - INSOMNIA [None]
